FAERS Safety Report 4591877-8 (Version None)
Quarter: 2005Q1

REPORT INFORMATION
  Report Type: 
  Country: None (occurrence: None)
  Receive Date: 20050222
  Receipt Date: 20050207
  Transmission Date: 20050727
  Serious: Yes (Other)
  Sender: FDA-Public Use
  Company Number: A03200500372

PATIENT
  Age: 82 Year
  Sex: Male
  Weight: 63.5036 kg

DRUGS (2)
  1. PLAVIX [Suspect]
     Indication: ARTERIAL OCCLUSIVE DISEASE
     Dosage: 75 MG QD - ORAL
     Route: 048
     Dates: start: 20050110
  2. ASPIRIN [Suspect]
     Indication: ARTERIAL OCCLUSIVE DISEASE
     Dosage: 81 MG QD - ORAL
     Route: 048
     Dates: start: 20050110

REACTIONS (1)
  - MACULAR DEGENERATION [None]
